FAERS Safety Report 9474018 (Version 1)
Quarter: 2013Q3

REPORT INFORMATION
  Report Type: Spontaneous
  Country: US (occurrence: None)
  Receive Date: 20130820
  Receipt Date: 20130820
  Transmission Date: 20140515
  Serious: Yes (Other)
  Sender: FDA-Public Use
  Company Number: USA/USA/13/0033996

PATIENT
  Age: 21 Year
  Sex: Female

DRUGS (4)
  1. FINASTERIDE [Suspect]
     Indication: MIGRAINE
  2. ORAL CONTRACEPTIVES (ORAL CONTRACEPTIVES) (NOS) [Concomitant]
  3. DEXTROAMPHEAMINE SULFATE (DEXAMPHETAMINE SUFLATE) [Concomitant]
  4. SPIRONOLACTONE  (SPIRONOLACTONE) [Concomitant]

REACTIONS (4)
  - Dry eye [None]
  - Headache [None]
  - Off label use [None]
  - Therapeutic response unexpected [None]
